FAERS Safety Report 23810838 (Version 1)
Quarter: 2024Q2

REPORT INFORMATION
  Report Type: Spontaneous
  Country: CN (occurrence: None)
  Receive Date: 20240502
  Receipt Date: 20240502
  Transmission Date: 20240716
  Serious: Yes (Disabling, Other)
  Sender: FDA-Public Use
  Company Number: 2024A100649

PATIENT
  Age: 22989 Day
  Sex: Male

DRUGS (1)
  1. DAPAGLIFLOZIN [Suspect]
     Active Substance: DAPAGLIFLOZIN
     Indication: Diabetes mellitus
     Route: 048
     Dates: start: 20240416, end: 20240418

REACTIONS (3)
  - Blood ketone body present [Unknown]
  - Urine ketone body present [Unknown]
  - Dry mouth [Unknown]

NARRATIVE: CASE EVENT DATE: 20240418
